FAERS Safety Report 12690851 (Version 2)
Quarter: 2017Q3

REPORT INFORMATION
  Report Type: Spontaneous
  Country: JP (occurrence: JP)
  Receive Date: 20160826
  Receipt Date: 20170731
  Transmission Date: 20171127
  Serious: Yes (Death, Other)
  Sender: FDA-Public Use
  Company Number: JP-CELGENEUS-JPN-2016084255

PATIENT

DRUGS (2)
  1. THALOMID [Suspect]
     Active Substance: THALIDOMIDE
     Indication: POEMS SYNDROME
     Dosage: 200 MILLIGRAM
     Route: 048
     Dates: start: 20101111, end: 20140703
  2. DEXAMETHASONE ORAL [Suspect]
     Active Substance: DEXAMETHASONE
     Indication: POEMS SYNDROME
     Dosage: 12 MILLIGRAM/SQ. METER
     Route: 048
     Dates: start: 20101111, end: 20140703

REACTIONS (22)
  - Hypertension [Unknown]
  - Dry skin [Unknown]
  - Hyperglycaemia [Unknown]
  - Peripheral sensory neuropathy [Unknown]
  - Eosinophil count increased [Unknown]
  - Constipation [Unknown]
  - Cardiac failure [Unknown]
  - Insomnia [Unknown]
  - Neutrophil count decreased [Unknown]
  - Urticaria [Unknown]
  - Dehydration [Unknown]
  - POEMS syndrome [Unknown]
  - Upper respiratory tract infection [Unknown]
  - Aspartate aminotransferase increased [Unknown]
  - Somnolence [Unknown]
  - Cardiac arrest [Unknown]
  - Hyperkalaemia [Unknown]
  - Sinus bradycardia [Unknown]
  - POEMS syndrome [Fatal]
  - Pyrexia [Unknown]
  - Alanine aminotransferase increased [Unknown]
  - White blood cell count decreased [Unknown]
